FAERS Safety Report 4746923-5 (Version None)
Quarter: 2005Q3

REPORT INFORMATION
  Report Type: 
  Country: None (occurrence: None)
  Receive Date: 20050817
  Receipt Date: 20050714
  Transmission Date: 20060218
  Serious: Yes (Death)
  Sender: FDA-Public Use
  Company Number: PHFR2005GB02469

PATIENT
  Age: 62 Year
  Sex: Female

DRUGS (8)
  1. ZOMETA [Suspect]
     Indication: HYPERCALCAEMIA
     Dosage: 4MG PER DAY
     Dates: start: 20050713
  2. HALOPERIDOL [Concomitant]
     Indication: NAUSEA
     Dosage: 1.5MG PER DAY
     Route: 048
     Dates: start: 20050713
  3. ORAMORPH SR [Concomitant]
     Indication: PAIN
     Dosage: 20MG PER DAY
     Route: 048
     Dates: start: 20050713
  4. NYSTATIN [Concomitant]
     Indication: ORAL CANDIDIASIS
     Route: 002
     Dates: start: 20050713
  5. DEXAMETHASONE [Concomitant]
     Indication: CACHEXIA
     Dosage: 2MG PER DAY
     Route: 048
     Dates: start: 20050401, end: 20050713
  6. TRAMADOL HCL [Concomitant]
     Indication: PAIN
     Dosage: 200MG PER DAY
     Route: 048
     Dates: end: 20050713
  7. BENDROFLUMETHIAZIDE [Concomitant]
     Indication: HYPERTENSION
     Dosage: 2.5MG PER DAY
     Route: 048
     Dates: end: 20050713
  8. ASPIRIN [Concomitant]
     Indication: CEREBROVASCULAR ACCIDENT
     Dosage: 75MG PER DAY
     Route: 048
     Dates: end: 20050713

REACTIONS (2)
  - BRADYCARDIA [None]
  - SMALL CELL LUNG CANCER STAGE UNSPECIFIED [None]
